FAERS Safety Report 8111599-6 (Version None)
Quarter: 2012Q1

REPORT INFORMATION
  Report Type: 
  Country: None (occurrence: None)
  Receive Date: 20120203
  Receipt Date: 20120131
  Transmission Date: 20120608
  Serious: Yes (Hospitalization)
  Sender: FDA-Public Use
  Company Number: US-SHIRE-ALL1-2012-00549

PATIENT
  Sex: Female
  Weight: 66 kg

DRUGS (1)
  1. FOSRENOL [Suspect]
     Indication: HYPERPHOSPHATAEMIA
     Dosage: 1000 MG, 3X/DAY:TID WITH MEALS
     Route: 048
     Dates: start: 20110629

REACTIONS (4)
  - ADVERSE EVENT [None]
  - TOOTH FRACTURE [None]
  - PRODUCT QUALITY ISSUE [None]
  - FALL [None]
